FAERS Safety Report 5473395-8 (Version None)
Quarter: 2007Q4

REPORT INFORMATION
  Report Type: 
  Country: None (occurrence: None)
  Receive Date: 20071001
  Receipt Date: 20070926
  Transmission Date: 20080405
  Serious: Yes (Other)
  Sender: FDA-Public Use
  Company Number: CAWYE388127SEP07

PATIENT
  Sex: Male
  Weight: 76 kg

DRUGS (1)
  1. TEMSIROLIMUS [Suspect]
     Indication: RENAL CANCER METASTATIC
     Route: 042
     Dates: start: 20070901

REACTIONS (1)
  - TYPE III IMMUNE COMPLEX MEDIATED REACTION [None]
